FAERS Safety Report 5859812-X (Version None)
Quarter: 2008Q3

REPORT INFORMATION
  Report Type: 
  Country: None (occurrence: None)
  Receive Date: 20080827
  Receipt Date: 20080820
  Transmission Date: 20090109
  Serious: Yes (Other)
  Sender: FDA-Public Use
  Company Number: JP-MERCK-0808USA04263

PATIENT
  Age: 12 Month
  Sex: Female

DRUGS (5)
  1. DECADRON SRC [Suspect]
     Indication: HISTIOCYTOSIS HAEMATOPHAGIC
     Route: 048
  2. ETOPOSIDE [Concomitant]
     Indication: HISTIOCYTOSIS HAEMATOPHAGIC
     Route: 042
  3. CYCLOSPORINE [Concomitant]
     Indication: HISTIOCYTOSIS HAEMATOPHAGIC
     Route: 048
  4. PREDNISOLON [Concomitant]
     Indication: HISTIOCYTOSIS HAEMATOPHAGIC
     Route: 065
  5. [THERAPY UNSPECIFIED] [Concomitant]
     Indication: HISTIOCYTOSIS HAEMATOPHAGIC
     Route: 065

REACTIONS (5)
  - BACTERIAL INFECTION [None]
  - BONE MARROW FAILURE [None]
  - BRONCHOPULMONARY ASPERGILLOSIS [None]
  - HISTIOCYTOSIS HAEMATOPHAGIC [None]
  - JAUNDICE [None]
